FAERS Safety Report 5978870-5 (Version None)
Quarter: 2008Q4

REPORT INFORMATION
  Report Type: 
  Country: None (occurrence: None)
  Receive Date: 20081204
  Receipt Date: 20081126
  Transmission Date: 20090506
  Serious: Yes (Hospitalization)
  Sender: FDA-Public Use
  Company Number: US-ELI_LILLY_AND_COMPANY-US200812000171

PATIENT
  Sex: Female

DRUGS (4)
  1. HUMALOG [Suspect]
     Dosage: UNK, UNK
     Dates: start: 20080101
  2. LANTUS [Concomitant]
     Dates: start: 20080101
  3. VITAMIN B-12 [Concomitant]
  4. COUMADIN [Concomitant]
     Indication: THROMBOSIS

REACTIONS (2)
  - BLOOD GLUCOSE INCREASED [None]
  - THROMBOSIS [None]
